FAERS Safety Report 19651008 (Version 1)
Quarter: 2021Q3

REPORT INFORMATION
  Report Type: Spontaneous
  Country: NL (occurrence: NL)
  Receive Date: 20210802
  Receipt Date: 20210802
  Transmission Date: 20211014
  Serious: Yes (Other)
  Sender: FDA-Public Use
  Company Number: NL-ELI_LILLY_AND_COMPANY-NL202107009139

PATIENT
  Sex: Male

DRUGS (1)
  1. ATOMOXETINE HYDROCHLORIDE. [Suspect]
     Active Substance: ATOMOXETINE HYDROCHLORIDE
     Indication: PRODUCT USED FOR UNKNOWN INDICATION
     Dosage: 40 MG, FOR A WEEK
     Route: 065

REACTIONS (6)
  - Dysuria [Unknown]
  - Hyperhidrosis [Unknown]
  - Musculoskeletal discomfort [Unknown]
  - Erectile dysfunction [Unknown]
  - Dizziness [Unknown]
  - Decreased appetite [Unknown]
